FAERS Safety Report 9768277 (Version 1)
Quarter: 2013Q4

REPORT INFORMATION
  Report Type: Spontaneous
  Country: US (occurrence: US)
  Receive Date: 20131217
  Receipt Date: 20131217
  Transmission Date: 20140711
  Serious: Yes (Other)
  Sender: FDA-Public Use
  Company Number: US-PFIZER INC-2013359930

PATIENT
  Sex: 0

DRUGS (2)
  1. LYRICA [Suspect]
     Dosage: 50 MG, 3X/DAY
  2. LYRICA [Suspect]
     Dosage: 150 MG, 3X/DAY

REACTIONS (6)
  - Spinal cord disorder [Unknown]
  - Hypoaesthesia [Unknown]
  - Anxiety [Unknown]
  - Pain [Unknown]
  - Pain in extremity [Unknown]
  - Paraesthesia [Unknown]
